FAERS Safety Report 9498408 (Version 2)
Quarter: 2013Q4

REPORT INFORMATION
  Report Type: Spontaneous
  Country: US (occurrence: US)
  Receive Date: 20130904
  Receipt Date: 20131011
  Transmission Date: 20140711
  Serious: Yes (Hospitalization)
  Sender: FDA-Public Use
  Company Number: US-GLAXOSMITHKLINE-A1039347A

PATIENT
  Age: 64 Year
  Sex: Male

DRUGS (3)
  1. ADVAIR [Suspect]
     Indication: ASTHMA
     Dosage: 1PUFF TWICE PER DAY
     Route: 055
     Dates: start: 2007
  2. PROAIR HFA [Concomitant]
  3. SINGULAIR [Concomitant]

REACTIONS (2)
  - Respiratory tract congestion [Not Recovered/Not Resolved]
  - Product quality issue [Unknown]
